FAERS Safety Report 6183129-X (Version None)
Quarter: 2009Q2

REPORT INFORMATION
  Report Type: 
  Country: None (occurrence: None)
  Receive Date: 20090507
  Receipt Date: 20090428
  Transmission Date: 20091009
  Serious: Yes (Other)
  Sender: FDA-Public Use
  Company Number: PHHY2009JP16044

PATIENT

DRUGS (1)
  1. NEORAL [Suspect]
     Indication: LIVER TRANSPLANT
     Route: 048

REACTIONS (3)
  - HYPOREFLEXIA [None]
  - OPHTHALMOPLEGIA [None]
  - SOMNOLENCE [None]
